FAERS Safety Report 26009829 (Version 1)
Quarter: 2025Q4

REPORT INFORMATION
  Report Type: Spontaneous
  Country: EU (occurrence: EU)
  Receive Date: 20251107
  Receipt Date: 20251107
  Transmission Date: 20260118
  Serious: Yes (Disabling, Other)
  Sender: BAXTER
  Company Number: EU-MLMSERVICE-20251028-PI688390-00140-3

PATIENT
  Age: 42 Year
  Sex: Male

DRUGS (10)
  1. CYCLOPHOSPHAMIDE [Suspect]
     Active Substance: CYCLOPHOSPHAMIDE
     Indication: Extragonadal primary seminoma (pure)
     Dosage: 1300 MG/M2, EVERY 2 WK (ON DAY 1, 2 AND 3)
     Route: 065
  2. PACLITAXEL [Suspect]
     Active Substance: PACLITAXEL
     Indication: Extragonadal primary seminoma (pure)
     Dosage: 200 MG/M2 (ON DAY 1)
     Route: 065
  3. GRANULOCYTE COLONY-STIMULATING FACTOR NOS [Concomitant]
     Active Substance: GRANULOCYTE COLONY-STIMULATING FACTOR NOS
     Indication: Stem cell therapy
     Dosage: 480 UG, BID
     Route: 065
  4. GRANULOCYTE COLONY-STIMULATING FACTOR NOS [Concomitant]
     Active Substance: GRANULOCYTE COLONY-STIMULATING FACTOR NOS
     Dosage: 300 UG, BID
     Route: 065
  5. ETOPOSIDE [Concomitant]
     Active Substance: ETOPOSIDE
     Dosage: 400 MG/M2
     Route: 065
  6. CARBOPLATIN [Concomitant]
     Active Substance: CARBOPLATIN
     Dosage: AUC 8
     Route: 065
  7. FILGRASTIM [Concomitant]
     Active Substance: FILGRASTIM
     Dosage: 5 UG/KG, QD
     Route: 065
  8. MESNA [Concomitant]
     Active Substance: MESNA
     Dosage: 300 MG/M2 (PRIOR TO THE CYCLOPHOSPHAMIDE ADMINISTRATION)
     Route: 065
  9. MESNA [Concomitant]
     Active Substance: MESNA
     Dosage: 650 MG/M2 (DURING CYCLOPHOSPHAMIDE ADMINISTRATION)
     Route: 065
  10. MESNA [Concomitant]
     Active Substance: MESNA
     Dosage: 500 MG/M2
     Route: 065

REACTIONS (4)
  - Ototoxicity [Unknown]
  - Neuropathy peripheral [Unknown]
  - Febrile neutropenia [Recovered/Resolved]
  - Pancytopenia [Recovered/Resolved]
